FAERS Safety Report 19582532 (Version 1)
Quarter: 2021Q3

REPORT INFORMATION
  Report Type: Spontaneous
  Country: GB (occurrence: GB)
  Receive Date: 20210720
  Receipt Date: 20210720
  Transmission Date: 20211014
  Serious: Yes (Other)
  Sender: FDA-Public Use
  Company Number: GB-MACLEODS PHARMACEUTICALS US LTD-MAC2021031916

PATIENT

DRUGS (7)
  1. TRIAMCINOLONE [Suspect]
     Active Substance: TRIAMCINOLONE
     Indication: CYSTOID MACULAR OEDEMA
     Dosage: UNK, SUB?TENONS, OPHTHALMIC
     Dates: start: 2019
  2. KETOROLAC [Suspect]
     Active Substance: KETOROLAC TROMETHAMINE
     Indication: CYSTOID MACULAR OEDEMA
     Dosage: UNK UNK, TID
     Route: 061
     Dates: start: 2019
  3. AZATHIOPRINE. [Concomitant]
     Active Substance: AZATHIOPRINE
     Indication: CROHN^S DISEASE
     Dosage: UNK
     Route: 065
  4. SALBUTAMOL [Concomitant]
     Active Substance: ALBUTEROL
     Indication: ASTHMA
     Dosage: UNK UNK, PRN
     Route: 055
  5. DEPO?MEDRONE [Suspect]
     Active Substance: METHYLPREDNISOLONE
     Indication: CYSTOID MACULAR OEDEMA
     Dosage: 30 MILLIGRAM, BILATERAL SUB?TENONS INJECTION OF STEROID DEPOT
     Route: 047
     Dates: start: 2019
  6. BECLOMETASONE [Concomitant]
     Active Substance: BECLOMETHASONE DIPROPIONATE
     Indication: ASTHMA
     Dosage: UNK, REGULAR
     Route: 055
  7. FINGOLIMOD. [Suspect]
     Active Substance: FINGOLIMOD
     Indication: MULTIPLE SCLEROSIS
     Dosage: 0.5 MILLIGRAM
     Route: 065
     Dates: start: 2015, end: 2019

REACTIONS (2)
  - Cystoid macular oedema [Recovered/Resolved]
  - Condition aggravated [Recovered/Resolved]

NARRATIVE: CASE EVENT DATE: 2019
